FAERS Safety Report 7994489-9 (Version None)
Quarter: 2011Q4

REPORT INFORMATION
  Report Type: 
  Country: None (occurrence: None)
  Receive Date: 20111220
  Receipt Date: 20111208
  Transmission Date: 20120403
  Serious: Yes (Other)
  Sender: FDA-Public Use
  Company Number: CA-ELI_LILLY_AND_COMPANY-CA201108004510

PATIENT
  Sex: Female

DRUGS (10)
  1. AGGRENOX [Concomitant]
     Dosage: UNK, BID
     Dates: start: 20111003
  2. APO-VERAP [Concomitant]
     Dosage: UNK UNK, BID
     Route: 048
     Dates: start: 20110912
  3. PREMARIN [Concomitant]
     Dosage: 3 DF, QD
     Route: 067
     Dates: start: 20110118
  4. ATACAND [Concomitant]
     Dosage: 1 DF, QD
     Route: 048
     Dates: start: 20111027
  5. VITAMIN D [Concomitant]
     Dosage: UNK
     Dates: start: 20090504
  6. CALCIUM [Concomitant]
     Dosage: UNK
     Dates: start: 20090504
  7. HYDROCORTISONE [Concomitant]
     Dosage: UNK, PRN
     Route: 061
     Dates: start: 20110914
  8. FORTEO [Suspect]
     Indication: OSTEOPOROSIS
     Dosage: 20 UG, QD
     Route: 058
     Dates: start: 20100630
  9. VITALUX [Concomitant]
  10. CRESTOR [Concomitant]
     Dosage: 1 DF, QD
     Route: 048
     Dates: start: 20111027

REACTIONS (8)
  - WHITE BLOOD CELL COUNT INCREASED [None]
  - THROMBOCYTOPENIA [None]
  - PROTEIN TOTAL [None]
  - ANAEMIA [None]
  - HYPERCALCAEMIA [None]
  - FATIGUE [None]
  - MULTIPLE MYELOMA [None]
  - RED BLOOD CELL COUNT DECREASED [None]
